FAERS Safety Report 9487040 (Version 2)
Quarter: 2014Q1

REPORT INFORMATION
  Report Type: Report from Study
  Country: JP (occurrence: JP)
  Receive Date: 20130829
  Receipt Date: 20140305
  Transmission Date: 20141002
  Serious: Yes (Other)
  Sender: FDA-Public Use
  Company Number: JP-JNJFOC-20130813298

PATIENT
  Age: 40 Year
  Sex: Female
  Weight: 56 kg

DRUGS (10)
  1. SIMPONI [Suspect]
     Indication: RHEUMATOID ARTHRITIS
     Route: 058
     Dates: start: 20130327, end: 20130327
  2. SIMPONI [Suspect]
     Indication: RHEUMATOID ARTHRITIS
     Route: 058
     Dates: start: 20120502, end: 20120502
  3. SIMPONI [Suspect]
     Indication: RHEUMATOID ARTHRITIS
     Route: 058
     Dates: start: 20130530
  4. RHEUMATREX [Suspect]
     Indication: RHEUMATOID ARTHRITIS
     Route: 048
     Dates: end: 20130130
  5. RHEUMATREX [Suspect]
     Indication: RHEUMATOID ARTHRITIS
     Route: 048
     Dates: start: 20130131
  6. KENTAN [Concomitant]
     Indication: RHEUMATOID ARTHRITIS
     Route: 048
     Dates: end: 20130130
  7. KENTAN [Concomitant]
     Indication: PROPHYLAXIS
     Route: 048
     Dates: start: 20130131, end: 20130326
  8. APLACE [Concomitant]
     Indication: PROPHYLAXIS
     Route: 048
  9. APLACE [Concomitant]
     Indication: GASTRIC ULCER
     Route: 048
  10. ALLELOCK [Concomitant]
     Indication: PROPHYLAXIS
     Route: 048

REACTIONS (1)
  - Bronchitis [Recovered/Resolved]
